FAERS Safety Report 5670624-2 (Version None)
Quarter: 2008Q1

REPORT INFORMATION
  Report Type: 
  Country: None (occurrence: None)
  Receive Date: 20080314
  Receipt Date: 20080314
  Transmission Date: 20080703
  Serious: Yes (Hospitalization)
  Sender: FDA-Public Use
  Company Number: None

PATIENT
  Age: 58 Year
  Sex: Female
  Weight: 61.2356 kg

DRUGS (5)
  1. AMBIEN [Suspect]
     Indication: HOT FLUSH
     Dosage: 10MG HS PRN PO
     Route: 048
     Dates: start: 20010901, end: 20070902
  2. AMBIEN [Suspect]
     Indication: INSOMNIA
     Dosage: 10MG HS PRN PO
     Route: 048
     Dates: start: 20010901, end: 20070902
  3. FOSIMAX [Concomitant]
  4. VITAMIN CAP [Concomitant]
  5. CA SUPPLEMENT [Concomitant]

REACTIONS (5)
  - AMNESIA [None]
  - ECONOMIC PROBLEM [None]
  - EMOTIONAL DISTRESS [None]
  - LEGAL PROBLEM [None]
  - SOMNAMBULISM [None]
